FAERS Safety Report 7444563-0 (Version None)
Quarter: 2011Q2

REPORT INFORMATION
  Report Type: 
  Country: None (occurrence: None)
  Receive Date: 20110427
  Receipt Date: 20110427
  Transmission Date: 20111010
  Serious: No
  Sender: FDA-Public Use
  Company Number: None

PATIENT
  Sex: Female
  Weight: 117.4816 kg

DRUGS (1)
  1. METFORMIN HYDROCHLORIDE [Suspect]
     Indication: TYPE 2 DIABETES MELLITUS
     Dosage: GLUCOPHAGE 1000MG PO BID - GENERIC  INITIALLY TRIED SEVERAL YRS AGO RETRIED LAST MONTH W/SAME RESULT
     Route: 048

REACTIONS (3)
  - FEELING ABNORMAL [None]
  - PRODUCT SUBSTITUTION ISSUE [None]
  - DIARRHOEA [None]
